FAERS Safety Report 7569673-9 (Version None)
Quarter: 2011Q2

REPORT INFORMATION
  Report Type: 
  Country: None (occurrence: None)
  Receive Date: 20110617
  Receipt Date: 20110607
  Transmission Date: 20111010
  Serious: Yes (Life-Threatening, Hospitalization)
  Sender: FDA-Public Use
  Company Number: WAES 1003USA00477

PATIENT
  Age: 17 Year
  Sex: Female
  Weight: 69.8539 kg

DRUGS (7)
  1. PENTAMIDINE ISETHIONATE [Concomitant]
  2. CEFTAZIDIME [Suspect]
     Indication: PNEUMONIA
     Dosage: Q8H/IV
     Dates: end: 20100512
  3. VALTREX [Suspect]
     Indication: PROPHYLAXIS
     Dosage: /BID/PO
     Route: 048
     Dates: end: 20100512
  4. ENALAPRIL MALEATE [Suspect]
     Indication: CARDIOMYOPATHY
     Dosage: /BID/PO
     Route: 048
     Dates: end: 20100512
  5. ISENTRESS [Suspect]
     Indication: HIV INFECTION
     Dosage: 400 MG/BID/PO
     Route: 048
     Dates: end: 20100727
  6. ISENTRESS [Suspect]
     Indication: HIV INFECTION
     Dosage: 400 MG/BID/PO
     Route: 048
     Dates: start: 20080208, end: 20090114
  7. VANCOMYCIN [Suspect]
     Indication: PYREXIA
     Dosage: Q8H/IV
     Route: 042
     Dates: end: 20100512

REACTIONS (47)
  - HERPES ZOSTER [None]
  - TYPE 2 DIABETES MELLITUS [None]
  - DIARRHOEA [None]
  - HEPATIC STEATOSIS [None]
  - ANAEMIA [None]
  - RENAL FAILURE ACUTE [None]
  - PLEURAL EFFUSION [None]
  - SEPSIS [None]
  - FUNGAL INFECTION [None]
  - HYPONATRAEMIA [None]
  - METABOLIC ACIDOSIS [None]
  - DEHYDRATION [None]
  - ELECTROCARDIOGRAM QT PROLONGED [None]
  - POLYDIPSIA [None]
  - PANCREATITIS [None]
  - AGITATION [None]
  - OCULAR HYPERAEMIA [None]
  - TREMOR [None]
  - DEAFNESS UNILATERAL [None]
  - BLOOD ALBUMIN DECREASED [None]
  - TREATMENT NONCOMPLIANCE [None]
  - TOOTHACHE [None]
  - RENAL CYST [None]
  - MENORRHAGIA [None]
  - LETHARGY [None]
  - AGGRESSION [None]
  - RASH PRURITIC [None]
  - HYPOKALAEMIA [None]
  - SELF-INJURIOUS IDEATION [None]
  - DIABETIC KETOACIDOSIS [None]
  - ARTHRALGIA [None]
  - SUICIDAL IDEATION [None]
  - RASH ERYTHEMATOUS [None]
  - NYSTAGMUS [None]
  - METAPNEUMOVIRUS INFECTION [None]
  - EAR INFECTION [None]
  - DEPRESSION [None]
  - FLUID OVERLOAD [None]
  - MYALGIA [None]
  - ARTHRITIS [None]
  - SWELLING FACE [None]
  - THROMBOCYTOPENIA [None]
  - POLYURIA [None]
  - HAEMOLYTIC ANAEMIA [None]
  - PNEUMONIA [None]
  - HUMAN RHINOVIRUS TEST POSITIVE [None]
  - BLOOD CALCIUM DECREASED [None]
